FAERS Safety Report 10891624 (Version 2)
Quarter: 2015Q1

REPORT INFORMATION
  Report Type: Spontaneous
  Country: JP (occurrence: JP)
  Receive Date: 20150306
  Receipt Date: 20150320
  Transmission Date: 20150721
  Serious: No
  Sender: FDA-Public Use
  Company Number: JP-009507513-1502JPN011882

PATIENT
  Age: 36 Year
  Sex: Male
  Weight: 70 kg

DRUGS (3)
  1. DIAZOXIDE CAPSULES 25 MG ^MSD^ [Suspect]
     Active Substance: DIAZOXIDE
     Dosage: DAILY DOSAGE UNKNOWN
     Route: 048
  2. DIAZOXIDE CAPSULES 25 MG ^MSD^ [Suspect]
     Active Substance: DIAZOXIDE
     Indication: INSULINOMA
     Dosage: 225 MG A DAY (ALSO REPORTED AS DIVIDED DOSE)
     Route: 048
     Dates: start: 2011
  3. DIAZOXIDE CAPSULES 25 MG ^MSD^ [Suspect]
     Active Substance: DIAZOXIDE
     Dosage: 400 MG A DAY (ALSO REPORTED AS: DIVIDED DOSE)
     Route: 048

REACTIONS (1)
  - Fluid retention [Unknown]
